FAERS Safety Report 10058591 (Version 1)
Quarter: 2014Q2

REPORT INFORMATION
  Report Type: Spontaneous
  Country: US (occurrence: US)
  Receive Date: 20140404
  Receipt Date: 20140404
  Transmission Date: 20141212
  Serious: No
  Sender: FDA-Public Use
  Company Number: US-MALLINCKRODT-T201304172

PATIENT
  Age: 74 Year
  Sex: Female
  Weight: 72.56 kg

DRUGS (6)
  1. RESTORIL [Suspect]
     Indication: INSOMNIA
     Dosage: 30 MG, QD
     Route: 048
     Dates: start: 2012
  2. LORAZEPAM [Concomitant]
     Indication: ANXIETY
     Dosage: 1 MG, TID PRN
     Route: 048
  3. AMLODIPINE [Concomitant]
     Indication: HYPERTENSION
     Dosage: 5 MG, QD
     Route: 048
  4. COQ10                              /00517201/ [Concomitant]
     Indication: ENZYME SUPPLEMENTATION
     Dosage: UNK
     Route: 048
  5. VITAMIN D3 [Concomitant]
     Indication: VITAMIN SUPPLEMENTATION
     Dosage: 5000 IU, QD
     Route: 048
  6. FISH OIL [Concomitant]
     Indication: NUTRITIONAL SUPPLEMENTATION
     Dosage: 1 CAPSULE, QD
     Route: 048

REACTIONS (2)
  - Insomnia [Not Recovered/Not Resolved]
  - Fatigue [Not Recovered/Not Resolved]
